FAERS Safety Report 6312594-X (Version None)
Quarter: 2009Q3

REPORT INFORMATION
  Report Type: 
  Country: None (occurrence: None)
  Receive Date: 20090813
  Receipt Date: 20090803
  Transmission Date: 20100115
  Serious: No
  Sender: FDA-Public Use
  Company Number: 230857K09USA

PATIENT
  Age: 38 Year
  Sex: Female
  Weight: 77 kg

DRUGS (6)
  1. REBIF [Suspect]
     Indication: MULTIPLE SCLEROSIS
     Dosage: 44 MCG, 3 IN 1 WEEKS, SUBCUTANEOUS
     Route: 058
     Dates: start: 20061219
  2. TIZANIDINE HCL [Suspect]
     Dosage: 4 MG, 4 IN 1 DAYS, ORAL, 4 MG, AS REQUIRED, ORAL
     Route: 048
     Dates: start: 20080612
  3. TIZANIDINE HCL [Suspect]
     Dosage: 4 MG, 4 IN 1 DAYS, ORAL, 4 MG, AS REQUIRED, ORAL
     Route: 048
     Dates: start: 20080612
  4. TRAMADOL HCL [Suspect]
     Indication: PAIN
     Dosage: 50 MG, 4 IN 1 DAYS, 50 MG, AS REQUIRED
     Dates: start: 20061219
  5. TRAMADOL HCL [Suspect]
     Indication: PAIN
     Dosage: 50 MG, 4 IN 1 DAYS, 50 MG, AS REQUIRED
     Dates: start: 20061219
  6. VENLAFAXINE HCL [Suspect]
     Dosage: 75 MG, 2 IN 1 DAYS, ORAL
     Route: 048
     Dates: start: 20080612

REACTIONS (2)
  - AFFECT LABILITY [None]
  - DIZZINESS [None]
